FAERS Safety Report 4647673-6 (Version None)
Quarter: 2005Q2

REPORT INFORMATION
  Report Type: 
  Country: None (occurrence: None)
  Receive Date: 20050426
  Receipt Date: 20050414
  Transmission Date: 20051028
  Serious: Yes (Life-Threatening, Other)
  Sender: FDA-Public Use
  Company Number: HQWYE039415APR05

PATIENT
  Age: 55 Year
  Sex: Female
  Weight: 70 kg

DRUGS (18)
  1. MYLOTARG [Suspect]
     Indication: ACUTE MYELOID LEUKAEMIA
     Dosage: 15 MG 1X PER 1 DAY, INTRAVENOUS
     Route: 042
     Dates: start: 20050401, end: 20050401
  2. ACYCLOVIR [Concomitant]
  3. ACETAMINOPHEN [Concomitant]
  4. DIGOXIN [Concomitant]
  5. DIPHENHYDRAMINE HCL [Concomitant]
  6. PREDNISONE [Concomitant]
  7. ALDACTONE [Concomitant]
  8. VANCOMYCIN [Concomitant]
  9. CANCIDAS [Concomitant]
  10. PANTOPRAZOLE (PANTOPRAZOLE) [Concomitant]
  11. MAGNESIUM SULFATE [Concomitant]
  12. CEFEPIME (CEFEPIME) [Concomitant]
  13. TOBRAMYCIN [Concomitant]
  14. POTASSIUM CHLORIDE [Concomitant]
  15. ACTIVAN (LORAZEPAM) [Concomitant]
  16. LISINOPRIL [Concomitant]
  17. LEVOTHYROXINE SODIUM [Concomitant]
  18. FLAGYL [Concomitant]

REACTIONS (5)
  - BLOOD GLUCOSE INCREASED [None]
  - CHOLECYSTITIS [None]
  - GALLBLADDER DISORDER [None]
  - HEPATIC FAILURE [None]
  - HEPATOMEGALY [None]
